FAERS Safety Report 12531671 (Version 1)
Quarter: 2016Q3

REPORT INFORMATION
  Report Type: Spontaneous
  Country: TR (occurrence: TR)
  Receive Date: 20160706
  Receipt Date: 20160706
  Transmission Date: 20161109
  Serious: Yes (Death, Hospitalization)
  Sender: FDA-Public Use
  Company Number: TR-BAYER-2016-126937

PATIENT
  Sex: Female

DRUGS (1)
  1. BETAFERON [Suspect]
     Active Substance: INTERFERON BETA-1B
     Dosage: UNK
     Dates: end: 20160625

REACTIONS (3)
  - Pyrexia [None]
  - Activities of daily living impaired [None]
  - Death [Fatal]

NARRATIVE: CASE EVENT DATE: 20160624
